FAERS Safety Report 6441414-8 (Version None)
Quarter: 2009Q4

REPORT INFORMATION
  Report Type: 
  Country: None (occurrence: None)
  Receive Date: 20091116
  Receipt Date: 20091104
  Transmission Date: 20100525
  Serious: Yes (Death)
  Sender: FDA-Public Use
  Company Number: DE-PFIZER INC-2009294863

PATIENT
  Age: 71 Year
  Sex: Male

DRUGS (5)
  1. ARGATRA [Suspect]
     Indication: HEPARIN-INDUCED THROMBOCYTOPENIA
     Dosage: 88.25 MG TOTAL DOSE
     Route: 042
     Dates: start: 20090830, end: 20090910
  2. GENTAMICIN [Concomitant]
  3. CIPROFLOXACIN [Concomitant]
  4. IMIPENEM [Concomitant]
     Dosage: UNK
     Dates: end: 20090911
  5. NOREPINEPHRINE BITARTRATE [Concomitant]
     Dosage: 0.2 - 0.5 UG/KG, 1 IN 1 MIN
     Dates: end: 20090911

REACTIONS (1)
  - INTESTINAL ISCHAEMIA [None]
